FAERS Safety Report 9155727 (Version 1)
Quarter: 2013Q1

REPORT INFORMATION
  Report Type: Spontaneous
  Country: US (occurrence: US)
  Receive Date: 20130311
  Receipt Date: 20130311
  Transmission Date: 20140127
  Serious: Yes (Other)
  Sender: FDA-Public Use
  Company Number: PHHY2013US021409

PATIENT
  Age: 48 Year
  Sex: Male

DRUGS (6)
  1. BUPROPION [Suspect]
     Indication: POLYDIPSIA PSYCHOGENIC
     Dosage: 300 MG, QD
     Route: 048
  2. ZIPRASIDONE [Interacting]
     Indication: POLYDIPSIA PSYCHOGENIC
  3. RISPERIDONE [Interacting]
     Indication: POLYDIPSIA PSYCHOGENIC
  4. OLANZAPINE [Interacting]
     Indication: POLYDIPSIA PSYCHOGENIC
  5. ARIPIPRAZOLE [Interacting]
     Indication: POLYDIPSIA PSYCHOGENIC
  6. CLONAZEPAM [Concomitant]
     Indication: POLYDIPSIA PSYCHOGENIC

REACTIONS (4)
  - Polydipsia [Recovered/Resolved]
  - Somnolence [Recovered/Resolved]
  - Drug interaction [Unknown]
  - Drug ineffective [Unknown]
